FAERS Safety Report 8762198 (Version 1)
Quarter: 2012Q4

REPORT INFORMATION
  Report Type: 
  Country: DE (occurrence: DE)
  Receive Date: 20120830
  Receipt Date: 20120830
  Transmission Date: 20130627
  Serious: Yes (Hospitalization)
  Sender: FDA-Public Use
  Company Number: DE-PFIZER INC-2012209988

PATIENT
  Sex: Female
  Weight: 77 kg

DRUGS (4)
  1. GENOTONORM MINIQUICK [Suspect]
     Dosage: 0.2 mg, 7/wk
     Route: 058
     Dates: start: 20060406
  2. ESTRADIOL [Concomitant]
     Indication: BLOOD LUTEINISING HORMONE DECREASED
     Dosage: UNK
     Dates: start: 20010701
  3. ESTRADIOL [Concomitant]
     Indication: BLOOD FOLLICLE STIMULATING HORMONE DECREASED
  4. ESTRADIOL [Concomitant]
     Indication: HYPOGONADISM FEMALE

REACTIONS (1)
  - Sternal fracture [Unknown]
